FAERS Safety Report 17684642 (Version 1)
Quarter: 2020Q2

REPORT INFORMATION
  Report Type: Spontaneous
  Country: HR (occurrence: HR)
  Receive Date: 20200420
  Receipt Date: 20200420
  Transmission Date: 20200714
  Serious: Yes (Hospitalization)
  Sender: FDA-Public Use
  Company Number: HR-MYLANLABS-2020M1039098

PATIENT
  Age: 40 Year
  Sex: Male
  Weight: 86 kg

DRUGS (1)
  1. BRUFEN EFFECT 400 MG FILM COATED TABLETS [Suspect]
     Active Substance: IBUPROFEN
     Indication: TOOTH EXTRACTION
     Dosage: 400 MILLIGRAM
     Route: 048
     Dates: start: 20200309, end: 20200309

REACTIONS (4)
  - Asthenia [Recovering/Resolving]
  - Syncope [Recovering/Resolving]
  - Vertigo [Recovering/Resolving]
  - Hypersensitivity [Recovering/Resolving]

NARRATIVE: CASE EVENT DATE: 20200309
